FAERS Safety Report 23245644 (Version 3)
Quarter: 2024Q1

REPORT INFORMATION
  Report Type: Spontaneous
  Country: LK (occurrence: LK)
  Receive Date: 20231130
  Receipt Date: 20240211
  Transmission Date: 20240410
  Serious: Yes (Hospitalization)
  Sender: FDA-Public Use
  Company Number: LK-002147023-NVSC2023LK250882

PATIENT
  Age: 70 Year
  Sex: Female

DRUGS (1)
  1. RANIBIZUMAB [Suspect]
     Active Substance: RANIBIZUMAB
     Indication: Product used for unknown indication
     Route: 065

REACTIONS (4)
  - Lacrimation increased [Unknown]
  - Erythema [Unknown]
  - Pruritus [Unknown]
  - Eye swelling [Unknown]
